FAERS Safety Report 8603953 (Version 2)
Quarter: 2013Q2

REPORT INFORMATION
  Report Type: Spontaneous
  Country: US (occurrence: US)
  Receive Date: 20120608
  Receipt Date: 20130620
  Transmission Date: 20140414
  Serious: No
  Sender: FDA-Public Use
  Company Number: US-ASTRAZENECA-2012SE35007

PATIENT
  Sex: Male

DRUGS (2)
  1. NEXIUM [Suspect]
     Indication: DYSPEPSIA
     Route: 048
     Dates: start: 2012
  2. NEXIUM [Suspect]
     Indication: WEIGHT DECREASED
     Route: 048
     Dates: start: 2012

REACTIONS (9)
  - Osteoporosis [Unknown]
  - Multiple fractures [Unknown]
  - Joint injury [Unknown]
  - Limb injury [Unknown]
  - Bone disorder [Unknown]
  - Bone pain [Unknown]
  - Bulimia nervosa [Unknown]
  - Arthritis [Unknown]
  - Depression [Unknown]
